FAERS Safety Report 12713346 (Version 3)
Quarter: 2016Q4

REPORT INFORMATION
  Report Type: Report from Study
  Country: GB (occurrence: GB)
  Receive Date: 20160902
  Receipt Date: 20161114
  Transmission Date: 20170207
  Serious: Yes (Hospitalization)
  Sender: FDA-Public Use
  Company Number: GB-ASTRAZENECA-2016SE88783

PATIENT
  Age: 25562 Day
  Sex: Female
  Weight: 84.4 kg

DRUGS (6)
  1. FULVESTRANT [Suspect]
     Active Substance: FULVESTRANT
     Indication: BREAST CANCER METASTATIC
     Dosage: 500 MG ON D1, D15, THEN D1 OF EACH 28 DAY CYCLE
     Route: 030
     Dates: start: 20160408
  2. OMEPRAZOLE. [Concomitant]
     Active Substance: OMEPRAZOLE
     Route: 065
     Dates: start: 20160323, end: 20161021
  3. ZOPICLONE [Concomitant]
     Active Substance: ZOPICLONE
     Route: 065
     Dates: start: 201310, end: 20161020
  4. ZD6474 CODE NOT BROKEN [Suspect]
     Active Substance: VANDETANIB
     Indication: BREAST CANCER METASTATIC
     Route: 048
     Dates: start: 20160408
  5. ADCAL D-3 [Concomitant]
     Route: 065
     Dates: end: 20161021
  6. DALTEPARIN [Concomitant]
     Active Substance: DALTEPARIN
     Route: 065
     Dates: start: 20161021, end: 20161021

REACTIONS (2)
  - Pleural effusion [Not Recovered/Not Resolved]
  - Lower respiratory tract infection [Recovered/Resolved]

NARRATIVE: CASE EVENT DATE: 20160811
